FAERS Safety Report 10228466 (Version 1)
Quarter: 2014Q2

REPORT INFORMATION
  Report Type: Spontaneous
  Country: FR (occurrence: FR)
  Receive Date: 20140610
  Receipt Date: 20140610
  Transmission Date: 20141212
  Serious: Yes (Hospitalization)
  Sender: FDA-Public Use
  Company Number: FR-ASTRAZENECA-2014SE39026

PATIENT
  Age: 79 Year
  Sex: Male

DRUGS (4)
  1. ZESTORETIC [Suspect]
     Indication: HYPERTENSION
     Dosage: 20/12.5 MG DAILY
     Route: 048
     Dates: start: 201404, end: 20140427
  2. STAGID [Concomitant]
  3. AMLOR [Concomitant]
  4. PARIET [Concomitant]

REACTIONS (1)
  - Angioedema [Recovered/Resolved]
